FAERS Safety Report 22090202 (Version 2)
Quarter: 2023Q1

REPORT INFORMATION
  Report Type: Spontaneous
  Country: CN (occurrence: CN)
  Receive Date: 20230313
  Receipt Date: 20230315
  Transmission Date: 20230418
  Serious: No
  Sender: FDA-Public Use
  Company Number: CN-002147023-NVSC2023CN053838

PATIENT
  Age: 28 Year
  Sex: Female

DRUGS (8)
  1. LOTENSIN [Suspect]
     Active Substance: BENAZEPRIL HYDROCHLORIDE
     Indication: Hypertension
     Dosage: UNK
     Route: 065
  2. LABETALOL [Suspect]
     Active Substance: LABETALOL\LABETALOL HYDROCHLORIDE
     Indication: Hypertension
     Dosage: UNK
     Route: 065
  3. FUROSEMIDE [Suspect]
     Active Substance: FUROSEMIDE
     Indication: Hypertension
     Dosage: UNK
     Route: 065
  4. FUROSEMIDE [Suspect]
     Active Substance: FUROSEMIDE
     Dosage: 20 MG
     Route: 042
  5. MAGNESIUM SULFATE [Suspect]
     Active Substance: MAGNESIUM SULFATE
     Indication: Muscle spasms
     Dosage: UNK
     Route: 065
  6. ADALAT [Suspect]
     Active Substance: NIFEDIPINE
     Indication: Hypertension
     Dosage: UNK
     Route: 048
  7. SODIUM NITROPRUSSIDE [Suspect]
     Active Substance: SODIUM NITROPRUSSIDE
     Indication: Hypertension
     Dosage: UNK
     Route: 065
  8. ETHACRIDINE LACTATE [Suspect]
     Active Substance: ETHACRIDINE LACTATE
     Indication: Labour induction
     Dosage: UNK
     Route: 012

REACTIONS (2)
  - Maternal exposure during pregnancy [Unknown]
  - Contraindicated product administered [Unknown]
